FAERS Safety Report 14770541 (Version 2)
Quarter: 2019Q3

REPORT INFORMATION
  Report Type: Spontaneous
  Country: US (occurrence: US)
  Receive Date: 20180417
  Receipt Date: 20190912
  Transmission Date: 20191004
  Serious: Yes (Other)
  Sender: FDA-Public Use
  Company Number: US-SA-2018SA004483

PATIENT
  Age: 49 Year
  Sex: Female

DRUGS (2)
  1. DUPIXENT [Suspect]
     Active Substance: DUPILUMAB
     Indication: DERMATITIS ATOPIC
     Dosage: 300 MG,QOW
     Route: 058
     Dates: start: 20170806
  2. DUPIXENT [Suspect]
     Active Substance: DUPILUMAB
     Dosage: 300 MG,QOW
     Route: 058
     Dates: start: 20170817

REACTIONS (8)
  - Eye pruritus [Unknown]
  - Conjunctivitis [Unknown]
  - Eye allergy [Unknown]
  - Eye irritation [Unknown]
  - Eye disorder [Unknown]
  - Eye infection [Unknown]
  - Condition aggravated [Unknown]
  - Eye discharge [Unknown]

NARRATIVE: CASE EVENT DATE: 2017
